FAERS Safety Report 4691388-5 (Version None)
Quarter: 2005Q2

REPORT INFORMATION
  Report Type: 
  Country: None (occurrence: None)
  Receive Date: 20050615
  Receipt Date: 20050603
  Transmission Date: 20051028
  Serious: Yes (Other)
  Sender: FDA-Public Use
  Company Number: 2005076206

PATIENT
  Age: 49 Year
  Sex: Male
  Weight: 106.1417 kg

DRUGS (3)
  1. LIPITOR [Suspect]
     Indication: BLOOD CHOLESTEROL INCREASED
     Dosage: 10 MG (10 MG, 1 IN 1 D), ORAL
     Route: 048
     Dates: start: 20030101
  2. ALPRAZOLAM [Concomitant]
  3. ZOLOFT [Concomitant]

REACTIONS (1)
  - RECTAL CANCER [None]
